FAERS Safety Report 9704052 (Version 1)
Quarter: 2013Q4

REPORT INFORMATION
  Report Type: Spontaneous
  Country: BR (occurrence: BR)
  Receive Date: 20131122
  Receipt Date: 20131122
  Transmission Date: 20140711
  Serious: Yes (Hospitalization, Other)
  Sender: FDA-Public Use
  Company Number: BR-PFIZER INC-2013332734

PATIENT
  Age: 49 Year
  Sex: Male

DRUGS (9)
  1. ATENOLOL [Suspect]
     Indication: HEART RATE IRREGULAR
     Dosage: UNK
     Route: 048
     Dates: end: 2011
  2. CRESTOR [Suspect]
     Indication: BLOOD CHOLESTEROL INCREASED
     Dosage: 20 MG, 1X/DAY
     Route: 048
     Dates: start: 2012
  3. BRILINTA [Suspect]
     Indication: MYOCARDIAL INFARCTION
     Dosage: 90 MG, 2X/DAY
     Route: 048
     Dates: start: 201301
  4. ASA [Concomitant]
     Indication: PROPHYLAXIS
     Dosage: UNK
     Route: 048
     Dates: start: 1991
  5. PURAN T4 [Concomitant]
     Indication: HYPOTHYROIDISM
     Dosage: UNK
     Route: 048
     Dates: start: 2005
  6. MICARDIS [Concomitant]
     Dosage: UNK
     Route: 048
     Dates: start: 2011
  7. VYTORIN [Concomitant]
     Indication: BLOOD CHOLESTEROL INCREASED
     Dosage: 80 MG, 1X/DAY
     Route: 048
     Dates: start: 2012
  8. MONOCARD [Concomitant]
     Indication: ANGINA PECTORIS
     Dosage: UNK
     Route: 048
     Dates: start: 201208
  9. CONCOR [Concomitant]
     Indication: HEART RATE IRREGULAR
     Dosage: UNK
     Route: 048
     Dates: start: 2011

REACTIONS (4)
  - Myocardial infarction [Recovered/Resolved]
  - Bronchospasm [Recovered/Resolved]
  - Angina pectoris [Recovered/Resolved]
  - Skin discolouration [Not Recovered/Not Resolved]
